FAERS Safety Report 7823596-6 (Version None)
Quarter: 2011Q4

REPORT INFORMATION
  Report Type: 
  Country: None (occurrence: None)
  Receive Date: 20111019
  Receipt Date: 20111013
  Transmission Date: 20120403
  Serious: Yes (Hospitalization)
  Sender: FDA-Public Use
  Company Number: US-PFIZER INC-2011245419

PATIENT
  Age: 62 Year
  Sex: Male

DRUGS (2)
  1. SUNITINIB MALATE [Suspect]
     Indication: PROSTATE CANCER
  2. DOCETAXEL [Suspect]
     Indication: PROSTATE CANCER

REACTIONS (1)
  - PNEUMONIA [None]
